FAERS Safety Report 15730963 (Version 3)
Quarter: 2019Q3

REPORT INFORMATION
  Report Type: Report from Study
  Country: US (occurrence: US)
  Receive Date: 20181217
  Receipt Date: 20190731
  Transmission Date: 20191004
  Serious: Yes (Hospitalization)
  Sender: FDA-Public Use
  Company Number: US-ACTELION-A-NJ2015-127783

PATIENT
  Sex: Female
  Weight: 94.79 kg

DRUGS (3)
  1. REMODULIN [Concomitant]
     Active Substance: TREPROSTINIL
  2. REVATIO [Concomitant]
     Active Substance: SILDENAFIL CITRATE
  3. OPSUMIT [Suspect]
     Active Substance: MACITENTAN
     Indication: PULMONARY ARTERIAL HYPERTENSION
     Dosage: 10 MG, QD
     Route: 048
     Dates: start: 20131219

REACTIONS (7)
  - Pulmonary arterial hypertension [Unknown]
  - Viral infection [Unknown]
  - Pneumonia [Unknown]
  - Product dose omission [Not Recovered/Not Resolved]
  - Dizziness [Unknown]
  - Fluid overload [Unknown]
  - Respiratory tract infection [Unknown]
